FAERS Safety Report 6145505-0 (Version None)
Quarter: 2009Q2

REPORT INFORMATION
  Report Type: 
  Country: None (occurrence: None)
  Receive Date: 20090402
  Receipt Date: 20090319
  Transmission Date: 20091009
  Serious: Yes (Hospitalization, Other)
  Sender: FDA-Public Use
  Company Number: 2009S1005147

PATIENT
  Age: 62 Year
  Sex: Male

DRUGS (3)
  1. AZATHIOPRINE [Suspect]
     Indication: LIVER TRANSPLANT
  2. CYCLOSPORINE [Suspect]
     Indication: LIVER TRANSPLANT
  3. ISONIAZID [Concomitant]

REACTIONS (4)
  - LUNG DISORDER [None]
  - TUBERCULOSIS [None]
  - TUBERCULOSIS OF CENTRAL NERVOUS SYSTEM [None]
  - VOMITING [None]
